FAERS Safety Report 4878741-1 (Version None)
Quarter: 2006Q1

REPORT INFORMATION
  Report Type: 
  Country: None (occurrence: None)
  Receive Date: 20060110
  Receipt Date: 20051228
  Transmission Date: 20060701
  Serious: Yes (Hospitalization)
  Sender: FDA-Public Use
  Company Number: 2005PV006336

PATIENT
  Age: 77 Year
  Sex: Female

DRUGS (4)
  1. BYETTA [Suspect]
     Indication: DIABETES MELLITUS
     Dosage: 10 MCG; BID; SC
     Route: 058
     Dates: start: 20050101
  2. GLIPIZIDE [Concomitant]
  3. LANTUS [Concomitant]
  4. CYMBALTA [Concomitant]

REACTIONS (1)
  - MENTAL DISORDER [None]
